FAERS Safety Report 10175432 (Version 1)
Quarter: 2014Q2

REPORT INFORMATION
  Report Type: Spontaneous
  Country: AU (occurrence: AU)
  Receive Date: 20140515
  Receipt Date: 20140515
  Transmission Date: 20141212
  Serious: No
  Sender: FDA-Public Use
  Company Number: AU-B.I. PHARMACEUTICALS,INC./RIDGEFIELD-2014-BI-21123AU

PATIENT
  Age: 80 Year
  Sex: Female

DRUGS (6)
  1. LINAGLIPTIN [Suspect]
     Indication: PRODUCT USED FOR UNKNOWN INDICATION
     Route: 065
  2. GLICLAZIDE [Concomitant]
     Route: 065
  3. ATENOLOL [Concomitant]
     Route: 065
  4. ATACAND [Concomitant]
     Route: 065
  5. FRUSEMIDE [Concomitant]
     Route: 065
  6. A STATIN [Concomitant]
     Route: 065

REACTIONS (1)
  - Pancreatitis [Not Recovered/Not Resolved]
